FAERS Safety Report 19280226 (Version 1)
Quarter: 2021Q2

REPORT INFORMATION
  Report Type: Spontaneous
  Country: FR (occurrence: FR)
  Receive Date: 20210520
  Receipt Date: 20210520
  Transmission Date: 20210717
  Serious: Yes (Death)
  Sender: FDA-Public Use
  Company Number: FR-TEVA-2021-FR-1912742

PATIENT
  Age: 86 Year
  Sex: Female
  Weight: 83 kg

DRUGS (13)
  1. DIFFU K [Suspect]
     Active Substance: POTASSIUM CHLORIDE
     Route: 065
  2. FUROSEMIDE. [Suspect]
     Active Substance: FUROSEMIDE
     Route: 065
  3. PARACETAMOL [Suspect]
     Active Substance: ACETAMINOPHEN
     Route: 065
  4. SKENAN [Suspect]
     Active Substance: MORPHINE SULFATE
     Route: 065
  5. GLICLAZIDE [Suspect]
     Active Substance: GLICLAZIDE
     Route: 065
  6. ATENOLOL. [Suspect]
     Active Substance: ATENOLOL
     Route: 065
  7. COMIRNATY [Suspect]
     Active Substance: TOZINAMERAN
     Indication: COVID-19 IMMUNISATION
     Dosage: 0.3ML
     Route: 030
     Dates: start: 20210417, end: 20210417
  8. RAMIPRIL. [Suspect]
     Active Substance: RAMIPRIL
     Route: 065
  9. MIANSERINE [Suspect]
     Active Substance: MIANSERIN HYDROCHLORIDE
     Route: 065
  10. ACARBOSE. [Suspect]
     Active Substance: ACARBOSE
     Route: 065
  11. ATORVASTATINE [Suspect]
     Active Substance: ATORVASTATIN
     Route: 065
  12. PREVISCAN (FLUINDIONE) [Suspect]
     Active Substance: FLUINDIONE
     Route: 065
  13. MOVICOL [Suspect]
     Active Substance: POLYETHYLENE GLYCOL 3350\POTASSIUM CHLORIDE\SODIUM BICARBONATE\SODIUM CHLORIDE
     Route: 065

REACTIONS (1)
  - Cardiogenic shock [Fatal]

NARRATIVE: CASE EVENT DATE: 20210424
